FAERS Safety Report 5902148-9 (Version None)
Quarter: 2008Q3

REPORT INFORMATION
  Report Type: 
  Country: None (occurrence: None)
  Receive Date: 20080929
  Receipt Date: 20080924
  Transmission Date: 20090109
  Serious: Yes (Other)
  Sender: FDA-Public Use
  Company Number: US-JNJCH-2008024957

PATIENT
  Age: 80 Year
  Sex: Female
  Weight: 59 kg

DRUGS (2)
  1. BENGAY ULTRA STRENGTH PATCH [Suspect]
     Indication: NECK PAIN
     Dosage: TEXT:1 PATCH ONE TIME
     Route: 061
     Dates: start: 20080923, end: 20080924
  2. REMERON [Suspect]
     Indication: SLEEP DISORDER
     Dosage: TEXT:7 MG
     Route: 065

REACTIONS (2)
  - BLOOD PRESSURE INCREASED [None]
  - HEADACHE [None]
